FAERS Safety Report 23026385 (Version 1)
Quarter: 2023Q4

REPORT INFORMATION
  Report Type: Other
  Country: IE (occurrence: None)
  Receive Date: 20231004
  Receipt Date: 20231004
  Transmission Date: 20240109
  Serious: Yes (Other)
  Sender: FDA-Public Use
  Company Number: IE-ROCHE-3340200

PATIENT
  Sex: Female

DRUGS (1)
  1. OCREVUS [Suspect]
     Active Substance: OCRELIZUMAB
     Indication: Product used for unknown indication
     Route: 042
     Dates: start: 20221012

REACTIONS (2)
  - Ovarian mass [Recovered/Resolved]
  - Ovarian mass [Unknown]

NARRATIVE: CASE EVENT DATE: 20230109
